FAERS Safety Report 7866299-4 (Version None)
Quarter: 2011Q4

REPORT INFORMATION
  Report Type: 
  Country: None (occurrence: None)
  Receive Date: 20111028
  Receipt Date: 20110526
  Transmission Date: 20120403
  Serious: No
  Sender: FDA-Public Use
  Company Number: US-GLAXOSMITHKLINE-A0929315A

PATIENT
  Age: 63 Year
  Sex: Male

DRUGS (13)
  1. ADVAIR DISKUS 100/50 [Suspect]
     Indication: ASTHMA
     Dosage: 1PUFF TWICE PER DAY
     Route: 055
     Dates: start: 20010101
  2. PROVENTIL [Concomitant]
  3. CIPRODEX [Concomitant]
  4. NEXIUM [Concomitant]
  5. OMNARIS [Concomitant]
  6. ATENOLOL [Concomitant]
  7. LOSARTAN POTASSIUM [Concomitant]
  8. ALBUTEROL [Concomitant]
  9. LEVOTHYROXINE SODIUM [Concomitant]
  10. SPIRIVA [Concomitant]
  11. KETEK [Concomitant]
  12. ASPIRIN [Concomitant]
  13. LIPITOR [Concomitant]

REACTIONS (1)
  - MIDDLE EAR EFFUSION [None]
